FAERS Safety Report 15469888 (Version 2)
Quarter: 2018Q4

REPORT INFORMATION
  Report Type: Spontaneous
  Country: PT (occurrence: PT)
  Receive Date: 20181005
  Receipt Date: 20181009
  Transmission Date: 20190205
  Serious: Yes (Other)
  Sender: FDA-Public Use
  Company Number: PT-MYLANLABS-2018M1073012

PATIENT
  Sex: Female

DRUGS (1)
  1. LEVONORGESTREL. [Suspect]
     Active Substance: LEVONORGESTREL
     Indication: CONTRACEPTION
     Dosage: 52 MG, UNK (SINGLE AT AN INITIAL RELEASE RATE OF 20 MICROGRAMS/24 HOURS. )
     Route: 015

REACTIONS (2)
  - Uterine perforation [Unknown]
  - Device dislocation [Recovered/Resolved]
